FAERS Safety Report 5737646-4 (Version None)
Quarter: 2008Q2

REPORT INFORMATION
  Report Type: 
  Country: None (occurrence: None)
  Receive Date: 20080514
  Receipt Date: 20080505
  Transmission Date: 20081010
  Serious: Yes (Death)
  Sender: FDA-Public Use
  Company Number: PT-WYE-H03988708

PATIENT
  Sex: Female

DRUGS (1)
  1. CORDARONE [Suspect]
     Dosage: DOSE UNKNOWN
     Route: 042
     Dates: start: 20080504, end: 20080504

REACTIONS (3)
  - DEATH [None]
  - HYPOTENSION [None]
  - MALAISE [None]
